FAERS Safety Report 6488142-0 (Version None)
Quarter: 2009Q4

REPORT INFORMATION
  Report Type: 
  Country: None (occurrence: None)
  Receive Date: 20091210
  Receipt Date: 20091203
  Transmission Date: 20100525
  Serious: Yes (Other)
  Sender: FDA-Public Use
  Company Number: A0833195A

PATIENT
  Age: 48 Year
  Sex: Female

DRUGS (3)
  1. TREXIMET [Suspect]
     Indication: SPINAL CORD INJURY
     Dosage: .5TAB AS REQUIRED
     Route: 048
     Dates: start: 20090401
  2. SUMATRIPTAN SUCCINATE [Suspect]
     Indication: MIGRAINE
     Dosage: .5TAB AS REQUIRED
     Route: 048
  3. BLOOD PRESSURE MEDICATION [Concomitant]

REACTIONS (6)
  - CHEST PAIN [None]
  - DRUG INEFFECTIVE [None]
  - MYOCARDIAL INFARCTION [None]
  - SOMNOLENCE [None]
  - THROAT TIGHTNESS [None]
  - WRONG TECHNIQUE IN DRUG USAGE PROCESS [None]
